FAERS Safety Report 4364958-1 (Version None)
Quarter: 2004Q2

REPORT INFORMATION
  Report Type: 
  Country: None (occurrence: None)
  Receive Date: 20040521
  Receipt Date: 20040512
  Transmission Date: 20050107
  Serious: Yes (Hospitalization)
  Sender: FDA-Public Use
  Company Number: US-JNJFOC-20040502577

PATIENT
  Age: 70 Year
  Sex: Female

DRUGS (4)
  1. REMICADE [Suspect]
     Indication: RHEUMATOID ARTHRITIS
     Dosage: 5 MG/KG INTRAVENOUS
     Route: 042
     Dates: start: 20030901
  2. REMICADE [Suspect]
     Indication: RHEUMATOID ARTHRITIS
     Dosage: 5 MG/KG INTRAVENOUS
     Route: 042
     Dates: start: 20040323
  3. IMURAN [Concomitant]
  4. BEXTRA [Concomitant]

REACTIONS (3)
  - APLASTIC ANAEMIA [None]
  - BLOOD ALKALINE PHOSPHATASE INCREASED [None]
  - PANCYTOPENIA [None]
